FAERS Safety Report 9129702 (Version 1)
Quarter: 2013Q1

REPORT INFORMATION
  Report Type: Spontaneous
  Country: US (occurrence: US)
  Receive Date: 20130228
  Receipt Date: 20130228
  Transmission Date: 20140127
  Serious: Yes (Other)
  Sender: FDA-Public Use
  Company Number: US-PFIZER INC-2013067960

PATIENT
  Age: 12 Year
  Sex: Male
  Weight: 45.35 kg

DRUGS (1)
  1. XYNTHA [Suspect]
     Indication: FACTOR VIII DEFICIENCY
     Dosage: 2 IU/KG, AS NEEDED

REACTIONS (1)
  - Haemorrhage [Unknown]
